FAERS Safety Report 8027164-5 (Version None)
Quarter: 2011Q4

REPORT INFORMATION
  Report Type: 
  Country: None (occurrence: None)
  Receive Date: 20111130
  Receipt Date: 20110509
  Transmission Date: 20120403
  Serious: Yes (Hospitalization, Other)
  Sender: FDA-Public Use
  Company Number: US201104004197

PATIENT
  Age: 59 Year
  Sex: Female
  Weight: 90.2 kg

DRUGS (23)
  1. METOPROLOL TARTRATE [Concomitant]
  2. SODIUM BICARBONATE IN PLASTIC CONTAINER [Concomitant]
  3. VITAMIN D [Concomitant]
  4. STATIN /00084401/ (TIABENDAZOLE) [Concomitant]
  5. ALPRAZOLAM [Concomitant]
  6. CENTRUM SILVER (ASCORBIC ACID, CALCIUM, MINERALS NOS, RETINOL, TOCOPHE [Concomitant]
  7. ACE INHIBITORS [Concomitant]
  8. HUMALOG [Concomitant]
  9. FLUOXETINE HCL [Concomitant]
  10. ENALAPRIL MALEATE [Concomitant]
  11. IMDUR [Concomitant]
  12. PRILOSEC [Concomitant]
  13. BYETTA [Suspect]
     Indication: TYPE 2 DIABETES MELLITUS
     Dosage: 10 UG, BID, SUBCUTANEOUS
     Route: 058
     Dates: end: 20110412
  14. ASPIRIN [Concomitant]
  15. TOPAMAX [Concomitant]
  16. NATEGLINIDE [Concomitant]
  17. GLUCAGON [Concomitant]
  18. CRESTOR [Concomitant]
  19. FUROSEMIDE [Concomitant]
  20. PLAVIX [Concomitant]
  21. LANTUS [Concomitant]
  22. COLCHCIINE (COLCHICINE) [Concomitant]
  23. ROBAXIN [Concomitant]

REACTIONS (4)
  - WEIGHT INCREASED [None]
  - PANCREATITIS [None]
  - OFF LABEL USE [None]
  - WEIGHT DECREASED [None]
